FAERS Safety Report 15320674 (Version 1)
Quarter: 2018Q3

REPORT INFORMATION
  Report Type: Spontaneous
  Country: US (occurrence: US)
  Receive Date: 20180821
  Receipt Date: 20180821
  Transmission Date: 20181010
  Serious: No
  Sender: FDA-Public Use
  Company Number: None

PATIENT
  Age: 62 Year
  Sex: Male
  Weight: 77.56 kg

DRUGS (1)
  1. IRON SUCROSE [Suspect]
     Active Substance: IRON SUCROSE
     Indication: IRON DEFICIENCY
     Dates: start: 20180605, end: 20180605

REACTIONS (3)
  - Dizziness [None]
  - Cold sweat [None]
  - Hypotension [None]

NARRATIVE: CASE EVENT DATE: 20180605
